FAERS Safety Report 7401274-5 (Version None)
Quarter: 2011Q2

REPORT INFORMATION
  Report Type: 
  Country: None (occurrence: None)
  Receive Date: 20110407
  Receipt Date: 20110329
  Transmission Date: 20111010
  Serious: Yes (Hospitalization)
  Sender: FDA-Public Use
  Company Number: FR-BAXTER-2011BH001455

PATIENT
  Age: 61 Year
  Sex: Female

DRUGS (6)
  1. CYCLOPHOSPHAMIDE [Suspect]
     Indication: BONE MARROW CONDITIONING REGIMEN
     Route: 042
     Dates: start: 20101111, end: 20101113
  2. SANDIMMUNE [Suspect]
     Indication: PROPHYLAXIS AGAINST GRAFT VERSUS HOST DISEASE
     Route: 042
     Dates: start: 20101111, end: 20101118
  3. METHOTREXATE GENERIC [Suspect]
     Indication: PROPHYLAXIS AGAINST GRAFT VERSUS HOST DISEASE
     Route: 042
     Dates: start: 20101111, end: 20101120
  4. THYMOGLOBULIN [Suspect]
     Indication: BONE MARROW CONDITIONING REGIMEN
     Route: 042
     Dates: start: 20101111, end: 20101112
  5. METHYLPREDNISOLONE [Concomitant]
     Indication: PROPHYLAXIS AGAINST GRAFT VERSUS HOST DISEASE
     Route: 065
     Dates: start: 20101111
  6. FLUDARABINE [Suspect]
     Indication: BONE MARROW CONDITIONING REGIMEN
     Route: 042
     Dates: start: 20101111, end: 20101113

REACTIONS (4)
  - ENCEPHALITIS [None]
  - CONVULSION [None]
  - CONFUSIONAL STATE [None]
  - MYOCLONUS [None]
